FAERS Safety Report 4462163-1 (Version None)
Quarter: 2004Q3

REPORT INFORMATION
  Report Type: 
  Country: None (occurrence: None)
  Receive Date: 20040927
  Receipt Date: 20040927
  Transmission Date: 20050211
  Serious: Yes (Life-Threatening)
  Sender: FDA-Public Use
  Company Number: None

PATIENT
  Age: 52 Year
  Sex: Female
  Weight: 59.9 kg

DRUGS (3)
  1. ALTEPLASE 2 MG GENENTECH [Suspect]
     Indication: CATHETER RELATED COMPLICATION
     Dosage: 2 MG INTRAVENOUS
     Route: 042
     Dates: start: 20040401, end: 20040401
  2. CLOPIDOGREL [Concomitant]
  3. ASPIRIN [Concomitant]

REACTIONS (3)
  - CEREBROVASCULAR ACCIDENT [None]
  - GASTROINTESTINAL HAEMORRHAGE [None]
  - HYPOTENSION [None]
